FAERS Safety Report 8304282-5 (Version None)
Quarter: 2012Q2

REPORT INFORMATION
  Report Type: 
  Country: None (occurrence: None)
  Receive Date: 20120423
  Receipt Date: 20120423
  Transmission Date: 20120825
  Serious: Yes (Hospitalization)
  Sender: FDA-Public Use
  Company Number: None

PATIENT
  Age: 44 Year
  Sex: Female
  Weight: 54.431 kg

DRUGS (1)
  1. ONDANSETRON [Suspect]
     Indication: PROCEDURAL NAUSEA
     Dosage: 4MG/2ML
     Route: 042
     Dates: start: 20120420, end: 20120420

REACTIONS (1)
  - ANAPHYLACTIC SHOCK [None]
